FAERS Safety Report 5004505-4 (Version None)
Quarter: 2006Q2

REPORT INFORMATION
  Report Type: 
  Country: None (occurrence: None)
  Receive Date: 20060517
  Receipt Date: 20060515
  Transmission Date: 20061013
  Serious: Yes (Other)
  Sender: FDA-Public Use
  Company Number: CA-GLAXOSMITHKLINE-A0605901A

PATIENT
  Sex: Male

DRUGS (1)
  1. NYTOL [Suspect]
     Indication: INTENTIONAL OVERDOSE
     Dosage: 13CAPL SINGLE DOSE
     Route: 048
     Dates: start: 20060515, end: 20060515

REACTIONS (1)
  - INTENTIONAL OVERDOSE [None]
